FAERS Safety Report 6175949-2 (Version None)
Quarter: 2009Q2

REPORT INFORMATION
  Report Type: 
  Country: None (occurrence: None)
  Receive Date: 20090501
  Receipt Date: 20090427
  Transmission Date: 20091009
  Serious: Yes (Other)
  Sender: FDA-Public Use
  Company Number: GB-BAYER-200919606GPV

PATIENT
  Age: 34 Year
  Sex: Female

DRUGS (1)
  1. CAMPATH [Suspect]
     Indication: MULTIPLE SCLEROSIS

REACTIONS (2)
  - MALIGNANT MELANOMA [None]
  - RASH [None]
